FAERS Safety Report 7239334-4 (Version None)
Quarter: 2011Q1

REPORT INFORMATION
  Report Type: 
  Country: None (occurrence: None)
  Receive Date: 20110121
  Receipt Date: 20110118
  Transmission Date: 20110831
  Serious: Yes (Other)
  Sender: FDA-Public Use
  Company Number: US-PFIZER INC-2010063546

PATIENT
  Sex: Male
  Weight: 84 kg

DRUGS (9)
  1. NEURONTIN [Suspect]
     Indication: NERVE INJURY
     Dosage: UNK
     Dates: start: 20010101, end: 20090301
  2. PRISTIQ [Suspect]
     Indication: ANXIETY
     Dosage: 50 MG, 1X/DAY
     Route: 048
     Dates: start: 20100401, end: 20100101
  3. OXYCODONE [Suspect]
     Dosage: UNK
  4. NEURONTIN [Suspect]
     Dosage: UNK
  5. PRISTIQ [Suspect]
     Indication: DEPRESSION
  6. PERCOCET [Concomitant]
     Dosage: 10 MG, AS NEEDED
  7. VALIUM [Concomitant]
     Dosage: UNK
  8. LYRICA [Suspect]
     Indication: NERVE INJURY
     Dosage: 75 MG, 2X/DAY
     Route: 048
     Dates: start: 20090301
  9. FIORICET [Concomitant]
     Indication: MIGRAINE
     Dosage: UNK

REACTIONS (4)
  - AGGRESSION [None]
  - DEPRESSION [None]
  - BLOOD PRESSURE INCREASED [None]
  - AGITATION [None]
